FAERS Safety Report 8261207-9 (Version None)
Quarter: 2012Q2

REPORT INFORMATION
  Report Type: 
  Country: None (occurrence: None)
  Receive Date: 20120405
  Receipt Date: 20120329
  Transmission Date: 20120825
  Serious: Yes (Other)
  Sender: FDA-Public Use
  Company Number: US-TEVA-2011003259

PATIENT
  Sex: Female
  Weight: 102.15 kg

DRUGS (6)
  1. PRISTIQ [Concomitant]
     Indication: DEPRESSION
     Dates: start: 20100101, end: 20110605
  2. NUVIGIL [Suspect]
     Indication: NARCOLEPSY
     Route: 065
  3. OBETROL [Concomitant]
     Dosage: 1ST DOSE AT 25 WEEKS GESTATION
  4. PRISTIQ [Concomitant]
     Indication: NARCOLEPSY
  5. METHYLPHENIDATE HCL [Concomitant]
     Indication: NARCOLEPSY
     Dosage: LAST DOSE AT 25 WEEKS GESTATION
     Dates: start: 20110101
  6. FLUOXETINE HYDROCHLORIDE [Concomitant]
     Indication: DEPRESSION
     Dosage: 20 MILLIGRAM;
     Dates: start: 20110615

REACTIONS (1)
  - FOETAL DISTRESS SYNDROME [None]
